FAERS Safety Report 11417652 (Version 1)
Quarter: 2015Q3

REPORT INFORMATION
  Report Type: Spontaneous
  Country: US (occurrence: US)
  Receive Date: 20150825
  Receipt Date: 20150825
  Transmission Date: 20151125
  Serious: Yes (Hospitalization)
  Sender: FDA-Public Use
  Company Number: US-GLAXOSMITHKLINE INC.-US2015GSK121586

PATIENT
  Age: 80 Year
  Sex: Female

DRUGS (1)
  1. ALBUTEROL. [Suspect]
     Active Substance: ALBUTEROL
     Indication: PRODUCT USED FOR UNKNOWN INDICATION

REACTIONS (8)
  - Dyspnoea [Recovering/Resolving]
  - Emotional distress [Unknown]
  - Hypokinesia [Unknown]
  - Wheezing [Unknown]
  - Prolonged expiration [Unknown]
  - Stress cardiomyopathy [Recovered/Resolved]
  - Chest pain [Recovered/Resolved]
  - Troponin I increased [Recovered/Resolved]
